FAERS Safety Report 5870200-2 (Version None)
Quarter: 2008Q3

REPORT INFORMATION
  Report Type: 
  Country: None (occurrence: None)
  Receive Date: 20080904
  Receipt Date: 20080826
  Transmission Date: 20090109
  Serious: Yes (Other)
  Sender: FDA-Public Use
  Company Number: US-PFIZER INC-2008072002

PATIENT
  Sex: Female
  Weight: 50 kg

DRUGS (2)
  1. XALATAN [Suspect]
     Indication: NORMAL TENSION GLAUCOMA
     Route: 047
  2. LUMIGAN [Suspect]
     Indication: NORMAL TENSION GLAUCOMA

REACTIONS (3)
  - INTRAOCULAR PRESSURE INCREASED [None]
  - MALIGNANT MELANOMA [None]
  - OCULAR HYPERAEMIA [None]
